FAERS Safety Report 11874891 (Version 1)
Quarter: 2015Q4

REPORT INFORMATION
  Report Type: Report from Study
  Country: US (occurrence: US)
  Receive Date: 20151229
  Receipt Date: 20151229
  Transmission Date: 20160305
  Serious: Yes (Hospitalization)
  Sender: FDA-Public Use
  Company Number: PHEH2015US003668

PATIENT
  Age: 2 Year
  Sex: Male
  Weight: 13.7 kg

DRUGS (11)
  1. TOBI [Suspect]
     Active Substance: TOBRAMYCIN
     Indication: BACTERIAL DISEASE CARRIER
  2. VITAMIN D3 [Concomitant]
     Active Substance: CHOLECALCIFEROL
     Indication: PRODUCT USED FOR UNKNOWN INDICATION
     Dosage: 2.5 ML, QD
     Route: 065
  3. TOBI [Suspect]
     Active Substance: TOBRAMYCIN
     Indication: CHRONIC RESPIRATORY FAILURE
  4. ACYCLOVIR. [Concomitant]
     Active Substance: ACYCLOVIR
     Indication: PRODUCT USED FOR UNKNOWN INDICATION
     Dosage: 200 MG, TID
     Route: 065
  5. URSODIOL. [Concomitant]
     Active Substance: URSODIOL
     Indication: PRODUCT USED FOR UNKNOWN INDICATION
     Dosage: 2.5 ML, TID
     Route: 065
  6. TOBI [Suspect]
     Active Substance: TOBRAMYCIN
     Indication: THALASSAEMIA BETA
     Dosage: 300 MG, Q12H (1 AMP IS 300 MG) (2 WEEKS ON AND 2 WEEKS OFF)
     Route: 065
  7. ALBUTEROL. [Concomitant]
     Active Substance: ALBUTEROL
     Indication: PRODUCT USED FOR UNKNOWN INDICATION
     Dosage: 1 DF, BID
     Route: 055
  8. PULMICORT TURBUHALER [Concomitant]
     Active Substance: BUDESONIDE
     Indication: PRODUCT USED FOR UNKNOWN INDICATION
     Dosage: 1 DF, BID
     Route: 055
  9. TOBI [Suspect]
     Active Substance: TOBRAMYCIN
     Indication: BONE MARROW TRANSPLANT
  10. LASIX [Concomitant]
     Active Substance: FUROSEMIDE
     Indication: PRODUCT USED FOR UNKNOWN INDICATION
     Dosage: 0.65 ML, QD
     Route: 065
  11. TOBI [Suspect]
     Active Substance: TOBRAMYCIN
     Indication: CYSTIC FIBROSIS

REACTIONS (4)
  - Inappropriate schedule of drug administration [Unknown]
  - Pyrexia [Recovered/Resolved]
  - Drug administered to patient of inappropriate age [Unknown]
  - Product use issue [Unknown]

NARRATIVE: CASE EVENT DATE: 20150312
